FAERS Safety Report 4732975-5 (Version None)
Quarter: 2005Q3

REPORT INFORMATION
  Report Type: 
  Country: None (occurrence: None)
  Receive Date: 20050802
  Receipt Date: 20050802
  Transmission Date: 20060218
  Serious: Yes (Hospitalization)
  Sender: FDA-Public Use
  Company Number: None

PATIENT
  Age: 67 Year
  Sex: Male
  Weight: 72.5755 kg

DRUGS (12)
  1. WARFARIN [Suspect]
     Indication: CEREBROVASCULAR ACCIDENT
     Dosage: CHRONIC
  2. ASPIRIN [Suspect]
     Indication: CEREBROVASCULAR ACCIDENT
     Dosage: CHRONIC
  3. ATENOLOL [Concomitant]
  4. LIPITOR [Concomitant]
  5. POTASSIUM CHLORIDE [Concomitant]
  6. COZAAR [Concomitant]
  7. NORVASC [Concomitant]
  8. AVANDIA [Concomitant]
  9. LASIX [Concomitant]
  10. PRILOSEC [Concomitant]
  11. FLOMAX [Concomitant]
  12. ZOLOFT [Concomitant]

REACTIONS (7)
  - ACTIVATED PARTIAL THROMBOPLASTIN TIME PROLONGED [None]
  - ASTHENIA [None]
  - BLOOD URINE [None]
  - CHROMATURIA [None]
  - INTERNATIONAL NORMALISED RATIO INCREASED [None]
  - ORAL INTAKE REDUCED [None]
  - PROTHROMBIN TIME PROLONGED [None]
